FAERS Safety Report 6052586-1 (Version None)
Quarter: 2009Q1

REPORT INFORMATION
  Report Type: 
  Country: None (occurrence: None)
  Receive Date: 20090127
  Receipt Date: 20090116
  Transmission Date: 20090719
  Serious: Yes (Life-Threatening, Hospitalization, Disabling)
  Sender: FDA-Public Use
  Company Number: GB-RANBAXY-2008RR-20266

PATIENT
  Age: 70 Year
  Sex: Male

DRUGS (19)
  1. SIMVASTATIN [Suspect]
     Indication: BLOOD CHOLESTEROL INCREASED
     Route: 048
  2. AMITRIPTYLINE HCL [Concomitant]
  3. ASPIRIN [Concomitant]
  4. COSOPT [Concomitant]
  5. DICLOFENAC [Concomitant]
  6. FENTANYL CITRATE [Concomitant]
  7. FLUCLOXACILLIN [Concomitant]
  8. FUSIDIC ACID [Concomitant]
  9. GABAPENTIN [Concomitant]
  10. GLUCOSAMINE [Concomitant]
  11. LACTULOSE [Concomitant]
  12. LISINOPRIL [Concomitant]
  13. MAGNESIUM HYDROXIDE TAB [Concomitant]
  14. NULYTELY [Concomitant]
  15. ACETAMINOPHEN [Concomitant]
  16. SENNA [Concomitant]
  17. SPIRIVA [Concomitant]
  18. TRAMADOL HYDROCHLORIDE [Concomitant]
  19. XALATAN [Concomitant]

REACTIONS (4)
  - MUSCULAR WEAKNESS [None]
  - RENAL FAILURE ACUTE [None]
  - RESPIRATORY FAILURE [None]
  - RHABDOMYOLYSIS [None]
